FAERS Safety Report 7744343-2 (Version None)
Quarter: 2011Q3

REPORT INFORMATION
  Report Type: 
  Country: None (occurrence: None)
  Receive Date: 20110912
  Receipt Date: 20110902
  Transmission Date: 20111222
  Serious: Yes (Hospitalization)
  Sender: FDA-Public Use
  Company Number: IT-ASTRAZENECA-2011SE52962

PATIENT
  Age: 13580 Day
  Sex: Male

DRUGS (2)
  1. INVEGA [Concomitant]
     Route: 048
  2. SEROQUEL [Suspect]
     Route: 048
     Dates: start: 20110809, end: 20110809

REACTIONS (1)
  - POISONING [None]
